FAERS Safety Report 4810539-2 (Version None)
Quarter: 2005Q4

REPORT INFORMATION
  Report Type: 
  Country: None (occurrence: None)
  Receive Date: 20051025
  Receipt Date: 20051025
  Transmission Date: 20060501
  Serious: Yes (Hospitalization)
  Sender: FDA-Public Use
  Company Number: None

PATIENT
  Sex: Male
  Weight: 47.1741 kg

DRUGS (5)
  1. IRESSA [Suspect]
     Indication: THROAT CANCER
     Dosage: 250 MG DAILY PO
     Route: 048
     Dates: start: 20040523, end: 20051020
  2. ALBUTEROL [Concomitant]
  3. TYLENOL W/ CODEINE NO. 3 [Concomitant]
  4. ZOLOFT [Concomitant]
  5. PREVACID [Concomitant]

REACTIONS (4)
  - GASTROINTESTINAL TUBE INSERTION [None]
  - PYREXIA [None]
  - RESPIRATORY DISTRESS [None]
  - RESPIRATORY FAILURE [None]
